FAERS Safety Report 9431074 (Version 2)
Quarter: 2013Q3

REPORT INFORMATION
  Report Type: Spontaneous
  Country: DE (occurrence: DE)
  Receive Date: 20130730
  Receipt Date: 20130821
  Transmission Date: 20140515
  Serious: Yes (Life-Threatening, Hospitalization, Other)
  Sender: FDA-Public Use
  Company Number: DE-B.I. PHARMACEUTICALS,INC./RIDGEFIELD-2013-DE-02025DE

PATIENT
  Sex: Male
  Weight: 71 kg

DRUGS (1)
  1. AGGRENOX [Suspect]
     Indication: ILL-DEFINED DISORDER
     Route: 048
     Dates: start: 201007, end: 20130726

REACTIONS (3)
  - Cerebrovascular accident [Unknown]
  - Blood creatinine [Unknown]
  - Renal failure [Recovered/Resolved]
